FAERS Safety Report 6810424-0 (Version None)
Quarter: 2010Q2

REPORT INFORMATION
  Report Type: 
  Country: None (occurrence: None)
  Receive Date: 20100630
  Receipt Date: 20100621
  Transmission Date: 20101027
  Serious: Yes (Hospitalization, Disabling)
  Sender: FDA-Public Use
  Company Number: US-JNJFOC-20100606499

PATIENT
  Sex: Male

DRUGS (13)
  1. LEVAQUIN [Suspect]
     Indication: PYREXIA
     Route: 065
  2. REVLIMID [Suspect]
     Indication: MULTIPLE MYELOMA
     Route: 048
  3. REVLIMID [Suspect]
     Route: 048
  4. REVLIMID [Suspect]
     Route: 048
  5. REVLIMID [Suspect]
     Route: 048
  6. DIOVAN [Concomitant]
     Route: 048
  7. COREG [Concomitant]
     Route: 048
  8. LUMIGAN [Concomitant]
     Route: 065
  9. PRILOSEC [Concomitant]
     Route: 048
  10. DECADRON [Concomitant]
     Indication: MULTIPLE MYELOMA
     Route: 048
  11. DECADRON [Concomitant]
     Route: 048
  12. COSOPT [Concomitant]
     Route: 065
  13. COUMADIN [Concomitant]
     Indication: DEEP VEIN THROMBOSIS
     Route: 048

REACTIONS (3)
  - DEHYDRATION [None]
  - DIARRHOEA [None]
  - HYPOTENSION [None]
